FAERS Safety Report 17962618 (Version 7)
Quarter: 2020Q4

REPORT INFORMATION
  Report Type: Report from Study
  Country: JP (occurrence: JP)
  Receive Date: 20200630
  Receipt Date: 20201106
  Transmission Date: 20210113
  Serious: Yes (Hospitalization, Other)
  Sender: FDA-Public Use
  Company Number: JP-PFIZER INC-2019-05449

PATIENT
  Age: 57 Year
  Sex: Male
  Weight: 77.8 kg

DRUGS (20)
  1. MEKTOVI [Suspect]
     Active Substance: BINIMETINIB
     Dosage: 30 MG, EVERYDAY
     Route: 048
     Dates: start: 20190613, end: 20190818
  2. MEKTOVI [Suspect]
     Active Substance: BINIMETINIB
     Dosage: 60 MG, DAILY EVERYDAY
     Route: 048
     Dates: start: 20200327, end: 20200409
  3. MEKTOVI [Suspect]
     Active Substance: BINIMETINIB
     Dosage: 60 MG, EVERYDAY
     Route: 048
     Dates: start: 20190417, end: 20190517
  4. BRAFTOVI [Suspect]
     Active Substance: ENCORAFENIB
     Dosage: 300 MG, EVERYDAY
     Route: 048
     Dates: start: 20190417, end: 20190517
  5. MEKTOVI [Suspect]
     Active Substance: BINIMETINIB
     Dosage: 30 MG
     Route: 048
     Dates: start: 20190927, end: 20190928
  6. BRAFTOVI [Suspect]
     Active Substance: ENCORAFENIB
     Dosage: 200 MG
     Route: 048
     Dates: start: 20190927, end: 20190928
  7. BRAFTOVI [Suspect]
     Active Substance: ENCORAFENIB
     Dosage: 300 MG, DAILY EVERYDAY
     Route: 048
     Dates: start: 20200327, end: 20200409
  8. TAFINLAR [Suspect]
     Active Substance: DABRAFENIB MESYLATE
     Indication: MALIGNANT MELANOMA
     Dosage: 300 MG
     Route: 065
     Dates: start: 20191009, end: 20191010
  9. TAFINLAR [Suspect]
     Active Substance: DABRAFENIB MESYLATE
     Dosage: 200 MG
     Route: 065
     Dates: start: 2019, end: 20200220
  10. MEKINIST [Suspect]
     Active Substance: TRAMETINIB DIMETHYL SULFOXIDE
     Indication: MALIGNANT MELANOMA
     Dosage: 2 MG
     Route: 048
     Dates: start: 20191009, end: 20191010
  11. MEKTOVI [Suspect]
     Active Substance: BINIMETINIB
     Indication: MALIGNANT MELANOMA
     Dosage: 90 MG
     Route: 048
     Dates: start: 20190410, end: 20190411
  12. MEKTOVI [Suspect]
     Active Substance: BINIMETINIB
     Dosage: UNK
     Route: 048
     Dates: start: 2020, end: 2020
  13. OPDIVO [Suspect]
     Active Substance: NIVOLUMAB
     Indication: MALIGNANT MELANOMA
     Dosage: 80 MG
     Route: 041
     Dates: start: 20200603, end: 20200603
  14. YERVOY [Suspect]
     Active Substance: IPILIMUMAB
     Indication: MALIGNANT MELANOMA
     Dosage: 3 MG/KG
     Route: 041
     Dates: start: 20200603, end: 20200603
  15. BRAFTOVI [Suspect]
     Active Substance: ENCORAFENIB
     Indication: MALIGNANT MELANOMA
     Dosage: 450 MG
     Route: 048
     Dates: start: 20190410, end: 20190411
  16. BRAFTOVI [Suspect]
     Active Substance: ENCORAFENIB
     Dosage: 200 MG, EVERYDAY
     Route: 048
     Dates: start: 20190613, end: 20190818
  17. MEKINIST [Suspect]
     Active Substance: TRAMETINIB DIMETHYL SULFOXIDE
     Dosage: 1.5 MG
     Route: 048
     Dates: start: 2019, end: 20200220
  18. BRAFTOVI [Suspect]
     Active Substance: ENCORAFENIB
     Dosage: UNK
     Route: 048
     Dates: start: 2020, end: 2020
  19. MEKTOVI [Suspect]
     Active Substance: BINIMETINIB
     Dosage: UNK
     Route: 048
     Dates: start: 2020
  20. BRAFTOVI [Suspect]
     Active Substance: ENCORAFENIB
     Dosage: UNK
     Route: 048
     Dates: start: 2020

REACTIONS (10)
  - Pyrexia [Recovered/Resolved]
  - Serous retinal detachment [Recovered/Resolved]
  - Serous retinal detachment [Recovering/Resolving]
  - Uveitis [Recovered/Resolved]
  - Hepatic function abnormal [Recovering/Resolving]
  - Influenza like illness [Recovered/Resolved]
  - Pyrexia [Recovered/Resolved]
  - Influenza like illness [Recovered/Resolved]
  - Hepatic function abnormal [Recovering/Resolving]
  - Pyrexia [Recovered/Resolved]

NARRATIVE: CASE EVENT DATE: 20190411
